FAERS Safety Report 25172144 (Version 2)
Quarter: 2025Q2

REPORT INFORMATION
  Report Type: Spontaneous
  Country: JP (occurrence: JP)
  Receive Date: 20250408
  Receipt Date: 20250416
  Transmission Date: 20250716
  Serious: Yes (Hospitalization)
  Sender: MYLAN
  Company Number: JP-MYE-2025M1028613AA

PATIENT
  Age: 9 Decade
  Sex: Male

DRUGS (20)
  1. PREGABALIN [Interacting]
     Active Substance: PREGABALIN
     Indication: Prostate cancer
     Dosage: 75 MILLIGRAM, BID
     Dates: start: 202502, end: 202503
  2. PREGABALIN [Interacting]
     Active Substance: PREGABALIN
     Indication: Metastasis
     Dosage: 75 MILLIGRAM, BID
     Route: 048
     Dates: start: 202502, end: 202503
  3. PREGABALIN [Interacting]
     Active Substance: PREGABALIN
     Dosage: 75 MILLIGRAM, BID
     Route: 048
     Dates: start: 202502, end: 202503
  4. PREGABALIN [Interacting]
     Active Substance: PREGABALIN
     Dosage: 75 MILLIGRAM, BID
     Dates: start: 202502, end: 202503
  5. FLUTAMIDE [Interacting]
     Active Substance: FLUTAMIDE
     Indication: Product used for unknown indication
  6. FLUTAMIDE [Interacting]
     Active Substance: FLUTAMIDE
     Route: 048
  7. FLUTAMIDE [Interacting]
     Active Substance: FLUTAMIDE
     Route: 048
  8. FLUTAMIDE [Interacting]
     Active Substance: FLUTAMIDE
  9. ZOLPIDEM [Interacting]
     Active Substance: ZOLPIDEM TARTRATE
     Indication: Product used for unknown indication
  10. ZOLPIDEM [Interacting]
     Active Substance: ZOLPIDEM TARTRATE
     Route: 048
  11. ZOLPIDEM [Interacting]
     Active Substance: ZOLPIDEM TARTRATE
     Route: 048
  12. ZOLPIDEM [Interacting]
     Active Substance: ZOLPIDEM TARTRATE
  13. TRAMADOL [Interacting]
     Active Substance: TRAMADOL
     Indication: Product used for unknown indication
  14. TRAMADOL [Interacting]
     Active Substance: TRAMADOL
     Route: 048
  15. TRAMADOL [Interacting]
     Active Substance: TRAMADOL
     Route: 048
  16. TRAMADOL [Interacting]
     Active Substance: TRAMADOL
  17. FENTANYL [Concomitant]
     Active Substance: FENTANYL
     Indication: Product used for unknown indication
  18. FENTANYL [Concomitant]
     Active Substance: FENTANYL
     Route: 065
  19. FENTANYL [Concomitant]
     Active Substance: FENTANYL
     Route: 065
  20. FENTANYL [Concomitant]
     Active Substance: FENTANYL

REACTIONS (2)
  - Platelet count decreased [Unknown]
  - Drug interaction [Unknown]
